FAERS Safety Report 8226986-5 (Version None)
Quarter: 2012Q1

REPORT INFORMATION
  Report Type: 
  Country: None (occurrence: None)
  Receive Date: 20120322
  Receipt Date: 20120313
  Transmission Date: 20120608
  Serious: Yes (Other)
  Sender: FDA-Public Use
  Company Number: CA-JNJFOC-20120306713

PATIENT
  Sex: Female

DRUGS (3)
  1. REMICADE [Suspect]
     Indication: PRODUCT USED FOR UNKNOWN INDICATION
     Route: 042
     Dates: start: 20120212
  2. HUMIRA [Suspect]
     Indication: ANKYLOSING SPONDYLITIS
     Route: 058
     Dates: start: 20120210, end: 20120210
  3. REMICADE [Suspect]
     Route: 042

REACTIONS (8)
  - CHEST DISCOMFORT [None]
  - MUSCULAR WEAKNESS [None]
  - MUSCLE TIGHTNESS [None]
  - OEDEMA PERIPHERAL [None]
  - PANIC ATTACK [None]
  - SWELLING FACE [None]
  - ANXIETY [None]
  - FATIGUE [None]
